FAERS Safety Report 23666360 (Version 4)
Quarter: 2024Q2

REPORT INFORMATION
  Report Type: Report from Study
  Country: US (occurrence: US)
  Receive Date: 20240324
  Receipt Date: 20240518
  Transmission Date: 20240716
  Serious: Yes (Life-Threatening, Hospitalization, Other)
  Sender: FDA-Public Use
  Company Number: US-002147023-NVSC2024US062757

PATIENT
  Sex: Female

DRUGS (2)
  1. GILENYA [Suspect]
     Active Substance: FINGOLIMOD HYDROCHLORIDE
     Indication: Multiple sclerosis
     Dosage: UNK
     Route: 048
  2. MAYZENT [Suspect]
     Active Substance: SIPONIMOD
     Indication: Multiple sclerosis
     Dosage: 2 MG, QD
     Route: 048
     Dates: start: 20240511

REACTIONS (10)
  - Pulmonary infarction [Unknown]
  - Skin lesion [Unknown]
  - Drug ineffective [Unknown]
  - Lymphocyte count decreased [Unknown]
  - Sepsis [Unknown]
  - Pneumonia [Unknown]
  - Pulmonary embolism [Unknown]
  - Multiple sclerosis [Unknown]
  - Abdominal pain upper [Unknown]
  - Feeling abnormal [Unknown]
